FAERS Safety Report 14402271 (Version 1)
Quarter: 2018Q1

REPORT INFORMATION
  Report Type: Spontaneous
  Country: JP (occurrence: JP)
  Receive Date: 20180117
  Receipt Date: 20180117
  Transmission Date: 20180509
  Serious: Yes (Other)
  Sender: FDA-Public Use
  Company Number: GXJP2018JP000445

PATIENT
  Age: 17 Year
  Sex: Male

DRUGS (2)
  1. LINEZOLID. [Concomitant]
     Active Substance: LINEZOLID
     Indication: PRODUCT USED FOR UNKNOWN INDICATION
     Dosage: UNK
     Route: 065
  2. LAMPREN CAPSULES [Suspect]
     Active Substance: CLOFAZIMINE
     Indication: ATYPICAL MYCOBACTERIAL INFECTION
     Route: 048

REACTIONS (2)
  - Long QT syndrome [Unknown]
  - Pigmentation disorder [Unknown]
